FAERS Safety Report 7134899-5 (Version None)
Quarter: 2010Q4

REPORT INFORMATION
  Report Type: 
  Country: None (occurrence: None)
  Receive Date: 20101129
  Receipt Date: 20101129
  Transmission Date: 20110411
  Serious: Yes (Other)
  Sender: FDA-Public Use
  Company Number: None

PATIENT
  Sex: Female

DRUGS (1)
  1. SAVELLA [Suspect]
     Dosage: SAVELLA 100MG BID PO
     Route: 048
     Dates: start: 20100312, end: 20100317

REACTIONS (2)
  - ANGIOEDEMA [None]
  - DRUG ERUPTION [None]
